FAERS Safety Report 4957658-8 (Version None)
Quarter: 2006Q1

REPORT INFORMATION
  Report Type: 
  Country: None (occurrence: None)
  Receive Date: 20060327
  Receipt Date: 20060313
  Transmission Date: 20060701
  Serious: Yes (Death)
  Sender: FDA-Public Use
  Company Number: 0603018B

PATIENT
  Age: 23 Year
  Sex: Female

DRUGS (1)
  1. SODIUM CHLORIDE 0.9% [Suspect]

REACTIONS (12)
  - CARDIAC ARREST [None]
  - CIRCULATORY COLLAPSE [None]
  - COAGULOPATHY [None]
  - HAEMATURIA [None]
  - HEART RATE INCREASED [None]
  - LOSS OF CONSCIOUSNESS [None]
  - OBSTETRICAL PULMONARY EMBOLISM [None]
  - POSTPARTUM HAEMORRHAGE [None]
  - RESPIRATORY ARREST [None]
  - URINE OUTPUT DECREASED [None]
  - UTERINE HAEMORRHAGE [None]
  - VAGINAL HAEMORRHAGE [None]
